FAERS Safety Report 4631298-2 (Version None)
Quarter: 2005Q2

REPORT INFORMATION
  Report Type: 
  Country: None (occurrence: None)
  Receive Date: 20050406
  Receipt Date: 20050321
  Transmission Date: 20051028
  Serious: Yes (Other)
  Sender: FDA-Public Use
  Company Number: USA041286856

PATIENT
  Sex: Female

DRUGS (17)
  1. STRATTERA [Suspect]
     Indication: ATTENTION DEFICIT/HYPERACTIVITY DISORDER
     Dosage: 80 MG IN THE EVENING
     Dates: start: 20040520, end: 20041124
  2. ABILIFY [Concomitant]
  3. CELEBREX [Concomitant]
  4. DEPAKOTE - SLOW RELEASE (VALPROATE SEMISODIUM) [Concomitant]
  5. ASPIRIN [Concomitant]
  6. EFFEXOR - SLOW RELEASE (VENLAFAXINE HYDROCHLORIDE) [Concomitant]
  7. FOSAMAX [Concomitant]
  8. CALCIUM CARBONATE + VITAMIN D [Concomitant]
  9. KRISTALOSE (LACTULOSE) [Concomitant]
  10. SENNA [Concomitant]
  11. SYNTHROID [Concomitant]
  12. TOPROL-XL [Concomitant]
  13. MULTI-VITAMIN [Concomitant]
  14. TRENTAL [Concomitant]
  15. PREMARIN H-C VAGINAL CREAM [Concomitant]
  16. SELSUN BLUE (SELENIUM SULFIDE) [Concomitant]
  17. TRILEPTAL [Concomitant]

REACTIONS (9)
  - AGGRESSION [None]
  - AGITATION [None]
  - CONDITION AGGRAVATED [None]
  - CREATININE RENAL CLEARANCE DECREASED [None]
  - ELECTROCARDIOGRAM ABNORMAL [None]
  - HYPERTENSION [None]
  - OEDEMA PERIPHERAL [None]
  - PROTEINURIA [None]
  - SPEECH DISORDER [None]
